FAERS Safety Report 14707598 (Version 1)
Quarter: 2018Q1

REPORT INFORMATION
  Report Type: Spontaneous
  Country: US (occurrence: US)
  Receive Date: 20180329
  Receipt Date: 20180329
  Transmission Date: 20180509
  Serious: Yes (Hospitalization)
  Sender: FDA-Public Use
  Company Number: None

PATIENT
  Age: 47 Year
  Sex: Male

DRUGS (8)
  1. AMBIEN [Concomitant]
     Active Substance: ZOLPIDEM TARTRATE
  2. MEROPENEM. [Concomitant]
     Active Substance: MEROPENEM
  3. ROBAXIN [Concomitant]
     Active Substance: METHOCARBAMOL
  4. OXYCODONE [Concomitant]
     Active Substance: OXYCODONE
  5. MS CONTIN [Concomitant]
     Active Substance: MORPHINE SULFATE
  6. LONSURF [Suspect]
     Active Substance: TIPIRACIL HYDROCHLORIDE\TRIFLURIDINE
     Indication: LUNG NEOPLASM MALIGNANT
     Route: 048
     Dates: start: 20180122
  7. INVANZ [Concomitant]
     Active Substance: ERTAPENEM SODIUM
  8. ALPRAZOLAM. [Concomitant]
     Active Substance: ALPRAZOLAM

REACTIONS (1)
  - Abscess [None]

NARRATIVE: CASE EVENT DATE: 20180328
